FAERS Safety Report 8480420-9 (Version None)
Quarter: 2012Q3

REPORT INFORMATION
  Report Type: 
  Country: None (occurrence: None)
  Receive Date: 20120702
  Receipt Date: 20120621
  Transmission Date: 20120928
  Serious: Yes (Life-Threatening, Hospitalization)
  Sender: FDA-Public Use
  Company Number: JP-GE HEALTHCARE MEDICAL DIAGNOSTICS-OMPQ-NO-1204S-0470

PATIENT
  Sex: Female

DRUGS (7)
  1. ALLOPURINOL [Concomitant]
  2. CRESTOR [Concomitant]
  3. FUROSEMIDE [Concomitant]
  4. ASPIRIN [Concomitant]
  5. ISOSORBIDE DINITRATE [Concomitant]
  6. OMNIPAQUE 140 [Suspect]
     Indication: RECTAL CANCER
     Route: 042
     Dates: start: 20120425, end: 20120425
  7. CARVEDILOL [Concomitant]

REACTIONS (11)
  - FEELING HOT [None]
  - HYPOXIA [None]
  - CARDIO-RESPIRATORY ARREST [None]
  - HAEMORRHAGE [None]
  - SHOCK [None]
  - UNRESPONSIVE TO STIMULI [None]
  - MULTI-ORGAN FAILURE [None]
  - VOMITING [None]
  - DYSPNOEA [None]
  - RIB FRACTURE [None]
  - ANAEMIA [None]
